FAERS Safety Report 23451551 (Version 3)
Quarter: 2024Q4

REPORT INFORMATION
  Report Type: Spontaneous
  Country: CA (occurrence: CA)
  Receive Date: 20240129
  Receipt Date: 20241224
  Transmission Date: 20250114
  Serious: Yes (Other)
  Sender: SANOFI AVENTIS
  Company Number: None

PATIENT
  Age: 75 Year
  Sex: Female

DRUGS (9)
  1. LANTUS SOLOSTAR [Suspect]
     Active Substance: INSULIN GLARGINE
     Indication: Product used for unknown indication
     Dosage: 5 U IN MORNING 2 IN EVENING
     Route: 058
  2. INSULIN GLARGINE [Suspect]
     Active Substance: INSULIN GLARGINE
     Indication: Product used for unknown indication
     Dosage: UNK
  3. ADALIMUMAB [Suspect]
     Active Substance: ADALIMUMAB
     Indication: Colitis ulcerative
     Dosage: 2.857 MG, QOW
     Route: 058
  4. ADALIMUMAB [Suspect]
     Active Substance: ADALIMUMAB
     Dosage: 40 MG, QOW
     Route: 058
  5. ADALIMUMAB [Suspect]
     Active Substance: ADALIMUMAB
     Dosage: 40 MG, QOW
     Route: 058
  6. ADALIMUMAB [Suspect]
     Active Substance: ADALIMUMAB
     Dosage: 40 MG, QOW
     Route: 058
  7. BASAGLAR [Suspect]
     Active Substance: INSULIN GLARGINE
     Indication: Product used for unknown indication
     Dosage: 1 U IN MORNING
     Route: 058
  8. RADICAVA [Concomitant]
     Active Substance: EDARAVONE
     Dosage: UNK
     Route: 042
  9. INSULIN HUMAN;INSULIN NOS [Concomitant]
     Dosage: UNK

REACTIONS (10)
  - Amyotrophic lateral sclerosis [Not Recovered/Not Resolved]
  - Adverse event [Unknown]
  - Arthralgia [Unknown]
  - Condition aggravated [Unknown]
  - Contusion [Unknown]
  - Fall [Unknown]
  - Limb discomfort [Unknown]
  - Monoplegia [Unknown]
  - Periarthritis [Unknown]
  - Inappropriate schedule of product administration [Unknown]

NARRATIVE: CASE EVENT DATE: 20230824
